FAERS Safety Report 23257327 (Version 1)
Quarter: 2023Q4

REPORT INFORMATION
  Report Type: Spontaneous
  Country: US (occurrence: US)
  Receive Date: 20231204
  Receipt Date: 20231204
  Transmission Date: 20240109
  Serious: Yes (Other)
  Sender: FDA-Public Use
  Company Number: US-APOTEX-2023AP017415

PATIENT
  Age: 35 Year
  Sex: Male

DRUGS (1)
  1. ITRACONAZOLE [Suspect]
     Active Substance: ITRACONAZOLE
     Indication: Coccidioidomycosis
     Dosage: UNK
     Route: 065

REACTIONS (1)
  - Cardiac failure congestive [Unknown]
